FAERS Safety Report 19643331 (Version 2)
Quarter: 2021Q3

REPORT INFORMATION
  Report Type: Report from Study
  Country: US (occurrence: US)
  Receive Date: 20210730
  Receipt Date: 20210830
  Transmission Date: 20211014
  Serious: Yes (Other)
  Sender: FDA-Public Use
  Company Number: US-UCBSA-2021016013

PATIENT
  Age: 35 Year
  Sex: Female

DRUGS (2)
  1. CERTOLIZUMAB PEGOL [Suspect]
     Active Substance: CERTOLIZUMAB PEGOL
     Dosage: 400 MILLIGRAM, EV 4 WEEKS
     Dates: end: 202107
  2. CERTOLIZUMAB PEGOL [Suspect]
     Active Substance: CERTOLIZUMAB PEGOL
     Indication: RHEUMATOID ARTHRITIS
     Dosage: 400 MILLIGRAM, EV 2 WEEKS(QOW)
     Dates: start: 20210312

REACTIONS (11)
  - Pruritus [Not Recovered/Not Resolved]
  - Dry skin [Not Recovered/Not Resolved]
  - Dysphagia [Not Recovered/Not Resolved]
  - Abdominal pain [Unknown]
  - Skin exfoliation [Not Recovered/Not Resolved]
  - Burning sensation [Unknown]
  - Trismus [Not Recovered/Not Resolved]
  - Hypersensitivity [Recovered/Resolved]
  - Nasal congestion [Unknown]
  - Rash [Recovered/Resolved]
  - Myalgia [Recovered/Resolved]

NARRATIVE: CASE EVENT DATE: 20210312
